FAERS Safety Report 8547809-0 (Version None)
Quarter: 2012Q3

REPORT INFORMATION
  Report Type: 
  Country: None (occurrence: None)
  Receive Date: 20120727
  Receipt Date: 20120201
  Transmission Date: 20120928
  Serious: Yes (Hospitalization)
  Sender: FDA-Public Use
  Company Number: US-ASTRAZENECA-2012SE06992

PATIENT
  Age: 28 Year
  Sex: Female
  Weight: 108.9 kg

DRUGS (3)
  1. SEROQUEL [Suspect]
     Indication: BIPOLAR DISORDER
     Route: 048
     Dates: start: 20110101
  2. ENBREL [Concomitant]
  3. CODEINE [Concomitant]

REACTIONS (6)
  - INFLUENZA [None]
  - JOINT SWELLING [None]
  - HEPATIC ENZYME INCREASED [None]
  - RHEUMATOID ARTHRITIS [None]
  - VOMITING [None]
  - DEHYDRATION [None]
